FAERS Safety Report 23611109 (Version 1)
Quarter: 2024Q1

REPORT INFORMATION
  Report Type: Spontaneous
  Country: US (occurrence: None)
  Receive Date: 20240308
  Receipt Date: 20240308
  Transmission Date: 20240410
  Serious: Yes (Hospitalization)
  Sender: FDA-Public Use
  Company Number: None

PATIENT
  Sex: Male
  Weight: 98.1 kg

DRUGS (4)
  1. CISPLATIN [Suspect]
     Active Substance: CISPLATIN
     Dates: end: 20240223
  2. DOXORUBICIN HYDROCHLORIDE [Suspect]
     Active Substance: DOXORUBICIN HYDROCHLORIDE
     Dates: end: 20240222
  3. METHOTREXATE [Suspect]
     Active Substance: METHOTREXATE
     Dates: end: 20240222
  4. VINBLASTINE SULFATE [Suspect]
     Active Substance: VINBLASTINE SULFATE
     Dates: end: 20240222

REACTIONS (11)
  - Hypotension [None]
  - Hyponatraemia [None]
  - Acute kidney injury [None]
  - Diarrhoea [None]
  - Hypophagia [None]
  - Blood creatine increased [None]
  - Tachycardia [None]
  - Atelectasis [None]
  - Lung consolidation [None]
  - Neutropenia [None]
  - Treatment noncompliance [None]

NARRATIVE: CASE EVENT DATE: 20240303
